FAERS Safety Report 15982070 (Version 3)
Quarter: 2019Q2

REPORT INFORMATION
  Report Type: Report from Study
  Country: US (occurrence: US)
  Receive Date: 20190219
  Receipt Date: 20190604
  Transmission Date: 20190711
  Serious: No
  Sender: FDA-Public Use
  Company Number: PHEH2019US007380

PATIENT
  Sex: Female

DRUGS (1)
  1. COSENTYX [Suspect]
     Active Substance: SECUKINUMAB
     Indication: PSORIATIC ARTHROPATHY
     Dosage: 150 MG, QMO (Q4W)
     Route: 058

REACTIONS (4)
  - Neck pain [Unknown]
  - Intervertebral disc protrusion [Unknown]
  - Blood glucose decreased [Unknown]
  - Sinusitis [Unknown]
